FAERS Safety Report 8032566-7 (Version None)
Quarter: 2012Q1

REPORT INFORMATION
  Report Type: 
  Country: None (occurrence: None)
  Receive Date: 20120110
  Receipt Date: 20110906
  Transmission Date: 20120608
  Serious: Yes (Hospitalization)
  Sender: FDA-Public Use
  Company Number: US-TYCO HEALTHCARE/MALLINCKRODT-T201101692

PATIENT
  Sex: Female

DRUGS (2)
  1. OPTIRAY 160 [Suspect]
     Indication: ARTERIOGRAM CAROTID
     Dosage: 100 ML, SINGLE
     Route: 042
     Dates: start: 20110831, end: 20110831
  2. STEROID PREP [Concomitant]
     Indication: PREMEDICATION
     Dosage: UNK

REACTIONS (1)
  - THROAT TIGHTNESS [None]
